FAERS Safety Report 5190116-7 (Version None)
Quarter: 2006Q4

REPORT INFORMATION
  Report Type: 
  Country: None (occurrence: None)
  Receive Date: 20061222
  Receipt Date: 20061215
  Transmission Date: 20070319
  Serious: Yes (Other)
  Sender: FDA-Public Use
  Company Number: US-JNJFOC-20061103146

PATIENT
  Sex: Female
  Weight: 67.13 kg

DRUGS (5)
  1. REMICADE [Suspect]
     Route: 042
  2. REMICADE [Suspect]
     Indication: RHEUMATOID ARTHRITIS
     Dosage: 2 INFUSIONS ON UNSPECIFIED DATES
     Route: 042
  3. AZULFIDINE [Concomitant]
     Indication: RHEUMATOID ARTHRITIS
  4. LANTUS [Concomitant]
     Indication: DIABETES MELLITUS
  5. CELEBREX [Concomitant]

REACTIONS (3)
  - CONVULSION [None]
  - GRAND MAL CONVULSION [None]
  - HYPOGLYCAEMIA [None]
